FAERS Safety Report 21994956 (Version 2)
Quarter: 2023Q1

REPORT INFORMATION
  Report Type: Spontaneous
  Country: US (occurrence: US)
  Receive Date: 20230215
  Receipt Date: 20230301
  Transmission Date: 20230418
  Serious: Yes (Hospitalization)
  Sender: FDA-Public Use
  Company Number: US-INCYTE CORPORATION-2023IN001409

PATIENT

DRUGS (2)
  1. JAKAFI [Suspect]
     Active Substance: RUXOLITINIB
     Indication: Essential thrombocythaemia
     Dosage: 15 MILLIGRAM, BID
     Route: 048
     Dates: start: 20220118
  2. JAKAFI [Suspect]
     Active Substance: RUXOLITINIB
     Dosage: 15 MILLIGRAM, BID
     Route: 048
     Dates: start: 20220118

REACTIONS (4)
  - Bronchitis [Unknown]
  - Oxygen saturation decreased [Unknown]
  - Product distribution issue [Unknown]
  - Off label use [Unknown]

NARRATIVE: CASE EVENT DATE: 20220118
